FAERS Safety Report 5498972-X (Version None)
Quarter: 2007Q4

REPORT INFORMATION
  Report Type: 
  Country: None (occurrence: None)
  Receive Date: 20071026
  Receipt Date: 20070511
  Transmission Date: 20080405
  Serious: No
  Sender: FDA-Public Use
  Company Number: A0650991A

PATIENT
  Sex: Female

DRUGS (7)
  1. ADVAIR DISKUS 100/50 [Suspect]
     Indication: COUGH
     Dosage: 1PUFF TWICE PER DAY
     Route: 055
     Dates: start: 20070508
  2. ATENOLOL [Concomitant]
  3. AXID [Concomitant]
  4. MECLIZINE [Concomitant]
  5. BECONASE [Concomitant]
  6. SUDAFED 12 HOUR [Concomitant]
  7. DOXYCLINE [Concomitant]

REACTIONS (1)
  - TINNITUS [None]
